FAERS Safety Report 5389674-9 (Version None)
Quarter: 2007Q3

REPORT INFORMATION
  Report Type: 
  Country: None (occurrence: None)
  Receive Date: 20070717
  Receipt Date: 20070702
  Transmission Date: 20080115
  Serious: Yes (Hospitalization)
  Sender: FDA-Public Use
  Company Number: JP-GENENTECH-244551

PATIENT
  Sex: Male

DRUGS (10)
  1. BEVACIZUMAB [Suspect]
     Indication: COLON CANCER
     Dosage: 272 MG, UNK
     Route: 042
     Dates: start: 20061005
  2. LEUCOVORIN CALCIUM [Suspect]
     Indication: COLON CANCER
     Dosage: 162 MG, UNK
     Route: 042
     Dates: start: 20061005
  3. OXALIPLATIN [Suspect]
     Indication: COLON CANCER
     Dosage: 130 MG, UNK
     Route: 042
     Dates: start: 20061005
  4. FLUOROURACIL [Suspect]
     Indication: COLON CANCER
     Dosage: 647.5 MG, UNK
     Route: 042
     Dates: start: 20061005
  5. FERROMIA [Concomitant]
     Indication: DRUG USE FOR UNKNOWN INDICATION
  6. KYTRIL [Concomitant]
     Indication: DRUG USE FOR UNKNOWN INDICATION
     Dates: start: 20061005
  7. HEPARIN [Concomitant]
     Indication: DRUG USE FOR UNKNOWN INDICATION
     Dates: start: 20061005
  8. CINAL [Concomitant]
     Indication: DRUG USE FOR UNKNOWN INDICATION
     Dates: start: 20061030
  9. ISODINE [Concomitant]
     Indication: DRUG USE FOR UNKNOWN INDICATION
     Dates: start: 20061024
  10. DECADRON [Concomitant]
     Indication: DRUG USE FOR UNKNOWN INDICATION
     Dates: start: 20061211

REACTIONS (3)
  - CARDIAC HYPERTROPHY [None]
  - INTERSTITIAL LUNG DISEASE [None]
  - NEUROPATHY PERIPHERAL [None]
